FAERS Safety Report 8816542 (Version 1)
Quarter: 2012Q4

REPORT INFORMATION
  Report Type: Spontaneous
  Country: US (occurrence: None)
  Receive Date: 20120927
  Receipt Date: 20120927
  Transmission Date: 20130627
  Serious: Yes (Hospitalization)
  Sender: FDA-Public Use
  Company Number: 1421166

PATIENT
  Age: 50 Year
  Sex: Male

DRUGS (1)
  1. DESMOPRESSIN [Suspect]
     Indication: PANHYPOPITUITARISM

REACTIONS (2)
  - Diabetes insipidus [None]
  - Prinzmetal angina [None]
